FAERS Safety Report 20368789 (Version 3)
Quarter: 2023Q1

REPORT INFORMATION
  Report Type: Spontaneous
  Country: US (occurrence: US)
  Receive Date: 20220124
  Receipt Date: 20230124
  Transmission Date: 20230418
  Serious: Yes (Other)
  Sender: FDA-Public Use
  Company Number: US-NOVARTISTESTPH-NVSC2022US010896

PATIENT
  Age: 80 Year
  Sex: Female

DRUGS (3)
  1. BEOVU [Suspect]
     Active Substance: BROLUCIZUMAB-DBLL
     Indication: Neovascular age-related macular degeneration
     Dosage: UNK
     Route: 031
     Dates: start: 20200106
  2. BEOVU [Suspect]
     Active Substance: BROLUCIZUMAB-DBLL
     Indication: Choroidal neovascularisation
     Dosage: UNK
     Route: 065
     Dates: start: 20200228
  3. BEOVU [Suspect]
     Active Substance: BROLUCIZUMAB-DBLL
     Dosage: UNK
     Route: 065
     Dates: start: 20200422

REACTIONS (23)
  - Retinopathy hypertensive [Unknown]
  - Macular oedema [Unknown]
  - Retinal vein occlusion [Unknown]
  - Retinal vascular occlusion [Unknown]
  - Retinal vasculitis [Unknown]
  - Cataract [Unknown]
  - Blindness unilateral [Unknown]
  - Retinal haemorrhage [Unknown]
  - Emotional distress [Unknown]
  - Deformity [Unknown]
  - Anhedonia [Unknown]
  - Anxiety [Unknown]
  - Dry eye [Unknown]
  - Photopsia [Unknown]
  - Depression [Unknown]
  - Musculoskeletal stiffness [Unknown]
  - Arthritis [Unknown]
  - Arthralgia [Unknown]
  - Eye injury [Unknown]
  - Joint swelling [Unknown]
  - Eye pain [Unknown]
  - Vision blurred [Unknown]
  - Vitreous floaters [Unknown]

NARRATIVE: CASE EVENT DATE: 20200601
